FAERS Safety Report 20149481 (Version 1)
Quarter: 2021Q4

REPORT INFORMATION
  Report Type: Spontaneous
  Country: US (occurrence: US)
  Receive Date: 20211205
  Receipt Date: 20211205
  Transmission Date: 20220303
  Serious: No
  Sender: FDA-Public Use
  Company Number: US-Blueprint Medicines Corporation-SP-US-2021-002322

PATIENT
  Age: 86 Year
  Sex: Male

DRUGS (1)
  1. AYVAKIT [Suspect]
     Active Substance: AVAPRITINIB
     Indication: Gastrointestinal stromal tumour
     Route: 048
     Dates: start: 20210312, end: 20211122

REACTIONS (4)
  - Aphasia [Unknown]
  - Drug ineffective [Unknown]
  - Cognitive disorder [Unknown]
  - Diarrhoea [Unknown]
